FAERS Safety Report 19012318 (Version 1)
Quarter: 2021Q1

REPORT INFORMATION
  Report Type: Spontaneous
  Country: US (occurrence: US)
  Receive Date: 20210316
  Receipt Date: 20210316
  Transmission Date: 20210420
  Serious: Yes (Hospitalization)
  Sender: FDA-Public Use
  Company Number: US-BAUSCH-BL-2021-008236

PATIENT
  Age: 12 Year
  Sex: Male

DRUGS (6)
  1. ISOPROTERENOL. [Suspect]
     Active Substance: ISOPROTERENOL
     Indication: CARDIOGENIC SHOCK
     Dosage: 0.8 MCG/KG/MIN
     Route: 065
  2. ISOPROTERENOL. [Suspect]
     Active Substance: ISOPROTERENOL
     Dosage: 0.5 MCG/KG/MIN
     Route: 065
  3. LISDEXAMFETAMINE [Suspect]
     Active Substance: LISDEXAMFETAMINE
     Indication: PRODUCT USED FOR UNKNOWN INDICATION
     Route: 048
  4. NOREPINEPHRINE. [Suspect]
     Active Substance: NOREPINEPHRINE
     Indication: CARDIOGENIC SHOCK
     Dosage: 0.2 MCG/KG/MIN
     Route: 065
  5. EPINEPHRINE. [Suspect]
     Active Substance: EPINEPHRINE
     Indication: CARDIOGENIC SHOCK
     Dosage: 0.12 MCG/KG/MIN
     Route: 065
  6. BUPROPION. [Suspect]
     Active Substance: BUPROPION
     Indication: PRODUCT USED FOR UNKNOWN INDICATION
     Route: 048

REACTIONS (4)
  - Cardiotoxicity [Unknown]
  - Overdose [Unknown]
  - Cardiogenic shock [Unknown]
  - Therapy non-responder [Unknown]
